FAERS Safety Report 12975542 (Version 2)
Quarter: 2016Q4

REPORT INFORMATION
  Report Type: Spontaneous
  Country: US (occurrence: US)
  Receive Date: 20161125
  Receipt Date: 20161202
  Transmission Date: 20170207
  Serious: Yes (Disabling, Other)
  Sender: FDA-Public Use
  Company Number: US-JNJFOC-20161124363

PATIENT
  Age: 8 Year

DRUGS (5)
  1. METHOTREXATE. [Suspect]
     Active Substance: METHOTREXATE
     Indication: OSTEOSARCOMA
     Route: 065
  2. CIS-PLATINUM [Suspect]
     Active Substance: CISPLATIN
     Indication: OSTEOSARCOMA
     Route: 065
  3. IFOSFAMIDE. [Suspect]
     Active Substance: IFOSFAMIDE
     Indication: OSTEOSARCOMA
     Route: 065
  4. DOXORUBICIN HYDROCHLORIDE. [Suspect]
     Active Substance: DOXORUBICIN HYDROCHLORIDE
     Indication: OSTEOSARCOMA
     Route: 065
  5. ETOPOSIDE. [Suspect]
     Active Substance: ETOPOSIDE
     Indication: OSTEOSARCOMA
     Route: 065

REACTIONS (7)
  - Off label use [Unknown]
  - Skin necrosis [Recovered/Resolved with Sequelae]
  - Impaired healing [Unknown]
  - Recall phenomenon [Recovered/Resolved with Sequelae]
  - Product use issue [Unknown]
  - Skin ulcer [Recovered/Resolved with Sequelae]
  - Amputation [Unknown]
